FAERS Safety Report 25587536 (Version 2)
Quarter: 2025Q3

REPORT INFORMATION
  Report Type: Spontaneous
  Country: HN (occurrence: HN)
  Receive Date: 20250721
  Receipt Date: 20250801
  Transmission Date: 20251021
  Serious: No
  Sender: PFIZER
  Company Number: HN-PFIZER INC-PV202500085558

PATIENT
  Age: 8 Year
  Sex: Female

DRUGS (1)
  1. GENOTROPIN [Suspect]
     Active Substance: SOMATROPIN
     Dosage: 0.7 MG, 1X/DAY

REACTIONS (1)
  - Product communication issue [Unknown]
